FAERS Safety Report 15309330 (Version 1)
Quarter: 2018Q3

REPORT INFORMATION
  Report Type: Spontaneous
  Country: US (occurrence: US)
  Receive Date: 20180811
  Receipt Date: 20180811
  Transmission Date: 20181010
  Serious: Yes (Other)
  Sender: FDA-Public Use
  Company Number: None

PATIENT
  Age: 25 Year
  Sex: Female
  Weight: 58.5 kg

DRUGS (6)
  1. NUVARING [Suspect]
     Active Substance: ETHINYL ESTRADIOL\ETONOGESTREL
     Indication: MENSTRUAL CYCLE MANAGEMENT
  2. ONE A DAY WOMEN MULTIVITAMIN [Concomitant]
  3. BIOTIN [Concomitant]
     Active Substance: BIOTIN
  4. NUVARING [Suspect]
     Active Substance: ETHINYL ESTRADIOL\ETONOGESTREL
     Indication: CONTRACEPTION
     Dosage: ?          QUANTITY:1 RING;OTHER FREQUENCY:MONTHLY;?
     Route: 067
     Dates: start: 20160103, end: 20180810
  5. LOW DOSE ASPIRIN [Concomitant]
     Active Substance: ASPIRIN
  6. VITAMIN D3 [Concomitant]
     Active Substance: CHOLECALCIFEROL

REACTIONS (13)
  - Pain [None]
  - Dry mouth [None]
  - Hypoaesthesia [None]
  - Libido decreased [None]
  - Panic attack [None]
  - Paraesthesia [None]
  - Muscle strain [None]
  - Platelet count increased [None]
  - Headache [None]
  - Anxiety [None]
  - Urinary tract infection [None]
  - Fungal infection [None]
  - Benign breast neoplasm [None]

NARRATIVE: CASE EVENT DATE: 20180803
